FAERS Safety Report 12053009 (Version 2)
Quarter: 2016Q2

REPORT INFORMATION
  Report Type: Spontaneous
  Country: GB (occurrence: GB)
  Receive Date: 20160209
  Receipt Date: 20160520
  Transmission Date: 20160815
  Serious: Yes (Life-Threatening, Hospitalization, Other)
  Sender: FDA-Public Use
  Company Number: GB-TEVA-630586ACC

PATIENT
  Age: 72 Year
  Sex: Male

DRUGS (14)
  1. FUROSEMIDE. [Concomitant]
     Active Substance: FUROSEMIDE
     Dosage: DOSAGE FORM: UNSPECIFIED, AKE ONE IN THE MORNING AND ONE AT LUNCH TIME
     Route: 065
     Dates: start: 20150618
  2. PREDNISOLONE. [Suspect]
     Active Substance: PREDNISOLONE
     Dosage: 80 MILLIGRAM DAILY; DOSAGE FORM: UNSPECIFIED
     Route: 048
  3. FOLIC ACID. [Concomitant]
     Active Substance: FOLIC ACID
     Dosage: 10 MILLIGRAM DAILY;
     Route: 065
     Dates: start: 20140106
  4. ZAPAIN [Concomitant]
     Active Substance: ACETAMINOPHEN\CODEINE PHOSPHATE
     Route: 065
     Dates: start: 20150522
  5. PREDNISOLONE. [Suspect]
     Active Substance: PREDNISOLONE
     Route: 065
     Dates: start: 20151210
  6. ACICLOVIR [Concomitant]
     Active Substance: ACYCLOVIR
     Dosage: 200 MILLIGRAM DAILY; DOSAGE FORM: UNSPECIFIED
     Route: 065
     Dates: start: 20150605
  7. IMBRUVICA [Suspect]
     Active Substance: IBRUTINIB
     Indication: CHRONIC LYMPHOCYTIC LEUKAEMIA
     Dosage: 420 MILLIGRAM DAILY;
     Route: 048
     Dates: start: 20150121, end: 201503
  8. ATENOLOL. [Concomitant]
     Active Substance: ATENOLOL
     Indication: HYPERTENSION
     Dosage: 50 MILLIGRAM DAILY;
     Route: 065
     Dates: start: 20101004
  9. COTRIMOXAZOLE [Concomitant]
     Active Substance: SULFAMETHOXAZOLE\TRIMETHOPRIM
     Route: 065
     Dates: start: 20150716
  10. LACRI-LUBE [Concomitant]
     Indication: EYE DISORDER
     Route: 047
     Dates: start: 20150924
  11. OMEPRAZOLE. [Concomitant]
     Active Substance: OMEPRAZOLE
     Route: 065
     Dates: start: 20150605
  12. PREDNISOLONE. [Suspect]
     Active Substance: PREDNISOLONE
     Indication: AUTOIMMUNE HAEMOLYTIC ANAEMIA
     Dosage: 90 MILLIGRAM DAILY; DOSAGE FORM: UNSPECIFIED
     Route: 048
     Dates: start: 20150106, end: 201503
  13. IMBRUVICA [Suspect]
     Active Substance: IBRUTINIB
     Dosage: 140 MILLIGRAM DAILY;
     Route: 048
     Dates: start: 201503, end: 201505
  14. AMOXICILLIN. [Concomitant]
     Active Substance: AMOXICILLIN
     Route: 065
     Dates: start: 20151214

REACTIONS (9)
  - Hypertension [Unknown]
  - Pneumonia cytomegaloviral [Unknown]
  - Sepsis [Unknown]
  - Oedema peripheral [Unknown]
  - Pneumocystis jirovecii pneumonia [Unknown]
  - Right ventricular dysfunction [Unknown]
  - Pulmonary hypertension [Unknown]
  - Bronchopulmonary aspergillosis [Unknown]
  - Atrial fibrillation [Unknown]

NARRATIVE: CASE EVENT DATE: 20150210
